FAERS Safety Report 14419388 (Version 36)
Quarter: 2025Q4

REPORT INFORMATION
  Report Type: Spontaneous
  Country: GB (occurrence: GB)
  Receive Date: 20180122
  Receipt Date: 20251210
  Transmission Date: 20260117
  Serious: Yes (Other)
  Sender: MYLAN
  Company Number: GB-MYLANLABS-2017M1077447

PATIENT
  Age: 32 Year
  Sex: Female

DRUGS (356)
  1. CLOZARIL [Suspect]
     Active Substance: CLOZAPINE
     Indication: Hallucination, auditory
     Dosage: UNK, QD
     Dates: start: 20050215, end: 20171205
  2. CLOZARIL [Suspect]
     Active Substance: CLOZAPINE
     Indication: Schizophrenia
     Dosage: UNK, QD
     Dates: start: 20050215, end: 20171205
  3. CLOZARIL [Suspect]
     Active Substance: CLOZAPINE
     Indication: Schizoaffective disorder
     Dosage: UNK, QD
     Route: 048
     Dates: start: 20050215, end: 20171205
  4. CLOZARIL [Suspect]
     Active Substance: CLOZAPINE
     Dosage: UNK, QD
     Route: 048
     Dates: start: 20050215, end: 20171205
  5. CLOZARIL [Suspect]
     Active Substance: CLOZAPINE
     Dosage: UNK (START DATE: ??-???-2006)
     Dates: end: 20171205
  6. CLOZARIL [Suspect]
     Active Substance: CLOZAPINE
     Dosage: UNK (START DATE: ??-???-2006)
     Dates: end: 20171205
  7. CLOZARIL [Suspect]
     Active Substance: CLOZAPINE
     Dosage: UNK (START DATE: ??-???-2006)
     Route: 048
     Dates: end: 20171205
  8. CLOZARIL [Suspect]
     Active Substance: CLOZAPINE
     Dosage: UNK (START DATE: ??-???-2006)
     Route: 048
     Dates: end: 20171205
  9. CLOZARIL [Suspect]
     Active Substance: CLOZAPINE
     Dosage: UNK
     Route: 048
  10. CLOZARIL [Suspect]
     Active Substance: CLOZAPINE
     Dosage: UNK
  11. CLOZARIL [Suspect]
     Active Substance: CLOZAPINE
     Dosage: UNK
  12. CLOZARIL [Suspect]
     Active Substance: CLOZAPINE
     Dosage: UNK
     Route: 048
  13. CLOZARIL [Suspect]
     Active Substance: CLOZAPINE
     Dosage: UNK UNK, QD (START DATE: ??-SEP-2019)
  14. CLOZARIL [Suspect]
     Active Substance: CLOZAPINE
     Dosage: UNK UNK, QD (START DATE: ??-SEP-2019)
     Route: 048
  15. CLOZARIL [Suspect]
     Active Substance: CLOZAPINE
     Dosage: UNK UNK, QD (START DATE: ??-SEP-2019)
     Route: 048
  16. CLOZARIL [Suspect]
     Active Substance: CLOZAPINE
     Dosage: UNK UNK, QD (START DATE: ??-SEP-2019)
  17. CLOZARIL [Suspect]
     Active Substance: CLOZAPINE
     Dosage: UNK, UNK, QD
     Dates: start: 20150215, end: 20171205
  18. CLOZARIL [Suspect]
     Active Substance: CLOZAPINE
     Dosage: UNK, UNK, QD
     Route: 048
     Dates: start: 20150215, end: 20171205
  19. CLOZARIL [Suspect]
     Active Substance: CLOZAPINE
     Dosage: UNK, UNK, QD
     Dates: start: 20150215, end: 20171205
  20. CLOZARIL [Suspect]
     Active Substance: CLOZAPINE
     Dosage: UNK, UNK, QD
     Route: 048
     Dates: start: 20150215, end: 20171205
  21. CLOZARIL [Suspect]
     Active Substance: CLOZAPINE
     Dosage: UNK, UNK (EVERY)/2019
     Route: 048
  22. CLOZARIL [Suspect]
     Active Substance: CLOZAPINE
     Dosage: UNK, UNK (EVERY)/2019
     Route: 048
  23. CLOZARIL [Suspect]
     Active Substance: CLOZAPINE
     Dosage: UNK, UNK (EVERY)/2019
  24. CLOZARIL [Suspect]
     Active Substance: CLOZAPINE
     Dosage: UNK, UNK (EVERY)/2019
  25. CLOZARIL [Suspect]
     Active Substance: CLOZAPINE
     Dosage: UNK
     Route: 065
  26. CLOZARIL [Suspect]
     Active Substance: CLOZAPINE
     Dosage: UNK
  27. CLOZARIL [Suspect]
     Active Substance: CLOZAPINE
     Dosage: UNK
  28. CLOZARIL [Suspect]
     Active Substance: CLOZAPINE
     Dosage: UNK
     Route: 065
  29. CLOZARIL [Suspect]
     Active Substance: CLOZAPINE
     Dosage: UNK
     Dates: start: 20180205, end: 20191205
  30. CLOZARIL [Suspect]
     Active Substance: CLOZAPINE
     Dosage: UNK
     Dates: start: 20180205, end: 20191205
  31. CLOZARIL [Suspect]
     Active Substance: CLOZAPINE
     Dosage: UNK
     Route: 048
     Dates: start: 20180205, end: 20191205
  32. CLOZARIL [Suspect]
     Active Substance: CLOZAPINE
     Dosage: UNK
     Route: 048
     Dates: start: 20180205, end: 20191205
  33. CLOZARIL [Suspect]
     Active Substance: CLOZAPINE
     Dosage: UNK
     Route: 048
     Dates: start: 20050215, end: 20171205
  34. CLOZARIL [Suspect]
     Active Substance: CLOZAPINE
     Dosage: UNK
     Route: 048
     Dates: start: 20050215, end: 20171205
  35. CLOZARIL [Suspect]
     Active Substance: CLOZAPINE
     Dosage: UNK
     Dates: start: 20050215, end: 20171205
  36. CLOZARIL [Suspect]
     Active Substance: CLOZAPINE
     Dosage: UNK
     Dates: start: 20050215, end: 20171205
  37. CLOZARIL [Suspect]
     Active Substance: CLOZAPINE
     Dosage: UNK
     Route: 048
  38. CLOZARIL [Suspect]
     Active Substance: CLOZAPINE
     Dosage: UNK
  39. CLOZARIL [Suspect]
     Active Substance: CLOZAPINE
     Dosage: UNK
  40. CLOZARIL [Suspect]
     Active Substance: CLOZAPINE
     Dosage: UNK
     Route: 048
  41. CLOZARIL [Suspect]
     Active Substance: CLOZAPINE
     Dosage: UNK
     Dates: start: 20180205, end: 20191205
  42. CLOZARIL [Suspect]
     Active Substance: CLOZAPINE
     Dosage: UNK
     Dates: start: 20180205, end: 20191205
  43. CLOZARIL [Suspect]
     Active Substance: CLOZAPINE
     Dosage: UNK
     Route: 048
     Dates: start: 20180205, end: 20191205
  44. CLOZARIL [Suspect]
     Active Substance: CLOZAPINE
     Dosage: UNK
     Route: 048
     Dates: start: 20180205, end: 20191205
  45. CLOZARIL [Suspect]
     Active Substance: CLOZAPINE
     Dosage: UNK
  46. CLOZARIL [Suspect]
     Active Substance: CLOZAPINE
     Dosage: UNK
  47. CLOZARIL [Suspect]
     Active Substance: CLOZAPINE
     Dosage: UNK
     Route: 065
  48. CLOZARIL [Suspect]
     Active Substance: CLOZAPINE
     Dosage: UNK
     Route: 065
  49. CLOZARIL [Suspect]
     Active Substance: CLOZAPINE
     Dosage: UNK, QD
  50. CLOZARIL [Suspect]
     Active Substance: CLOZAPINE
     Dosage: UNK, QD
  51. CLOZARIL [Suspect]
     Active Substance: CLOZAPINE
     Dosage: UNK, QD
     Route: 065
  52. CLOZARIL [Suspect]
     Active Substance: CLOZAPINE
     Dosage: UNK, QD
     Route: 065
  53. CLOZARIL [Suspect]
     Active Substance: CLOZAPINE
     Dosage: UNK, QD (2019)
  54. CLOZARIL [Suspect]
     Active Substance: CLOZAPINE
     Dosage: UNK, QD (2019)
     Route: 065
  55. CLOZARIL [Suspect]
     Active Substance: CLOZAPINE
     Dosage: UNK, QD (2019)
  56. CLOZARIL [Suspect]
     Active Substance: CLOZAPINE
     Dosage: UNK, QD (2019)
     Route: 065
  57. HALOPERIDOL [Suspect]
     Active Substance: HALOPERIDOL
     Indication: Hallucination, auditory
     Dosage: UNK (START DATE: ??-???-2019)
  58. HALOPERIDOL [Suspect]
     Active Substance: HALOPERIDOL
     Indication: Schizophrenia
     Dosage: UNK (START DATE: ??-???-2019)
  59. HALOPERIDOL [Suspect]
     Active Substance: HALOPERIDOL
     Dosage: UNK (START DATE: ??-???-2019)
     Route: 065
  60. HALOPERIDOL [Suspect]
     Active Substance: HALOPERIDOL
     Dosage: UNK (START DATE: ??-???-2019)
     Route: 065
  61. HALOPERIDOL [Suspect]
     Active Substance: HALOPERIDOL
     Dosage: UNK
  62. HALOPERIDOL [Suspect]
     Active Substance: HALOPERIDOL
     Dosage: UNK
  63. HALOPERIDOL [Suspect]
     Active Substance: HALOPERIDOL
     Dosage: UNK
     Route: 065
  64. HALOPERIDOL [Suspect]
     Active Substance: HALOPERIDOL
     Dosage: UNK
     Route: 065
  65. HALOPERIDOL [Suspect]
     Active Substance: HALOPERIDOL
     Dosage: UNK (START DATE: ??-???-2019)
  66. HALOPERIDOL [Suspect]
     Active Substance: HALOPERIDOL
     Dosage: UNK (START DATE: ??-???-2019)
     Route: 065
  67. HALOPERIDOL [Suspect]
     Active Substance: HALOPERIDOL
     Dosage: UNK (START DATE: ??-???-2019)
  68. HALOPERIDOL [Suspect]
     Active Substance: HALOPERIDOL
     Dosage: UNK (START DATE: ??-???-2019)
     Route: 065
  69. HALOPERIDOL [Suspect]
     Active Substance: HALOPERIDOL
     Dosage: UNK
     Route: 065
  70. HALOPERIDOL [Suspect]
     Active Substance: HALOPERIDOL
     Dosage: UNK
     Route: 065
  71. HALOPERIDOL [Suspect]
     Active Substance: HALOPERIDOL
     Dosage: UNK
  72. HALOPERIDOL [Suspect]
     Active Substance: HALOPERIDOL
     Dosage: UNK
  73. HALOPERIDOL [Suspect]
     Active Substance: HALOPERIDOL
     Dosage: UNK
     Route: 065
  74. HALOPERIDOL [Suspect]
     Active Substance: HALOPERIDOL
     Dosage: UNK
  75. HALOPERIDOL [Suspect]
     Active Substance: HALOPERIDOL
     Dosage: UNK
  76. HALOPERIDOL [Suspect]
     Active Substance: HALOPERIDOL
     Dosage: UNK
     Route: 065
  77. HALOPERIDOL [Suspect]
     Active Substance: HALOPERIDOL
     Dosage: UNK
     Route: 065
  78. HALOPERIDOL [Suspect]
     Active Substance: HALOPERIDOL
     Dosage: UNK
  79. HALOPERIDOL [Suspect]
     Active Substance: HALOPERIDOL
     Dosage: UNK
  80. HALOPERIDOL [Suspect]
     Active Substance: HALOPERIDOL
     Dosage: UNK
     Route: 065
  81. HALOPERIDOL [Suspect]
     Active Substance: HALOPERIDOL
     Dosage: UNK (START DATE: ??-???-2006)
     Route: 065
     Dates: end: 20171205
  82. HALOPERIDOL [Suspect]
     Active Substance: HALOPERIDOL
     Dosage: UNK (START DATE: ??-???-2006)
     Route: 065
     Dates: end: 20171205
  83. HALOPERIDOL [Suspect]
     Active Substance: HALOPERIDOL
     Dosage: UNK (START DATE: ??-???-2006)
     Dates: end: 20171205
  84. HALOPERIDOL [Suspect]
     Active Substance: HALOPERIDOL
     Dosage: UNK (START DATE: ??-???-2006)
     Dates: end: 20171205
  85. HALOPERIDOL [Suspect]
     Active Substance: HALOPERIDOL
     Dosage: UNK
  86. HALOPERIDOL [Suspect]
     Active Substance: HALOPERIDOL
     Dosage: UNK
  87. HALOPERIDOL [Suspect]
     Active Substance: HALOPERIDOL
     Dosage: UNK
     Route: 065
  88. HALOPERIDOL [Suspect]
     Active Substance: HALOPERIDOL
     Dosage: UNK
     Route: 065
  89. AMISULPRIDE [Suspect]
     Active Substance: AMISULPRIDE
     Indication: Hallucination, auditory
     Dosage: DOSAGE FORM: UNKNOWN
  90. AMISULPRIDE [Suspect]
     Active Substance: AMISULPRIDE
     Dosage: DOSAGE FORM: UNKNOWN
  91. AMISULPRIDE [Suspect]
     Active Substance: AMISULPRIDE
     Dosage: DOSAGE FORM: UNKNOWN
     Route: 048
  92. AMISULPRIDE [Suspect]
     Active Substance: AMISULPRIDE
     Dosage: DOSAGE FORM: UNKNOWN
     Route: 048
  93. AMISULPRIDE [Suspect]
     Active Substance: AMISULPRIDE
     Dosage: UNK
  94. AMISULPRIDE [Suspect]
     Active Substance: AMISULPRIDE
     Dosage: UNK
  95. AMISULPRIDE [Suspect]
     Active Substance: AMISULPRIDE
     Dosage: UNK
     Route: 065
  96. AMISULPRIDE [Suspect]
     Active Substance: AMISULPRIDE
     Dosage: UNK
     Route: 065
  97. AMISULPRIDE [Suspect]
     Active Substance: AMISULPRIDE
     Dosage: UNK
  98. AMISULPRIDE [Suspect]
     Active Substance: AMISULPRIDE
     Dosage: UNK
     Route: 065
  99. AMISULPRIDE [Suspect]
     Active Substance: AMISULPRIDE
     Dosage: UNK
  100. AMISULPRIDE [Suspect]
     Active Substance: AMISULPRIDE
     Dosage: UNK
     Route: 065
  101. AMISULPRIDE [Suspect]
     Active Substance: AMISULPRIDE
     Dosage: UNK
  102. AMISULPRIDE [Suspect]
     Active Substance: AMISULPRIDE
     Dosage: UNK
  103. AMISULPRIDE [Suspect]
     Active Substance: AMISULPRIDE
     Dosage: UNK
     Route: 065
  104. AMISULPRIDE [Suspect]
     Active Substance: AMISULPRIDE
     Dosage: UNK
     Route: 065
  105. AMISULPRIDE [Suspect]
     Active Substance: AMISULPRIDE
     Dosage: UNK
  106. AMISULPRIDE [Suspect]
     Active Substance: AMISULPRIDE
     Dosage: UNK
     Route: 065
  107. AMISULPRIDE [Suspect]
     Active Substance: AMISULPRIDE
     Dosage: UNK
     Route: 065
  108. AMISULPRIDE [Suspect]
     Active Substance: AMISULPRIDE
     Dosage: UNK
  109. AMISULPRIDE [Suspect]
     Active Substance: AMISULPRIDE
     Dosage: UNK
  110. AMISULPRIDE [Suspect]
     Active Substance: AMISULPRIDE
     Dosage: UNK
     Route: 065
  111. AMISULPRIDE [Suspect]
     Active Substance: AMISULPRIDE
     Dosage: UNK
     Route: 065
  112. AMISULPRIDE [Suspect]
     Active Substance: AMISULPRIDE
     Dosage: UNK
  113. AMISULPRIDE [Suspect]
     Active Substance: AMISULPRIDE
     Dosage: UNK
  114. AMISULPRIDE [Suspect]
     Active Substance: AMISULPRIDE
     Dosage: UNK
  115. AMISULPRIDE [Suspect]
     Active Substance: AMISULPRIDE
     Dosage: UNK
     Route: 048
  116. AMISULPRIDE [Suspect]
     Active Substance: AMISULPRIDE
     Dosage: UNK
     Route: 048
  117. AMISULPRIDE [Suspect]
     Active Substance: AMISULPRIDE
     Dosage: UNK
     Route: 065
  118. AMISULPRIDE [Suspect]
     Active Substance: AMISULPRIDE
     Dosage: UNK
     Route: 065
  119. AMISULPRIDE [Suspect]
     Active Substance: AMISULPRIDE
     Dosage: UNK
  120. AMISULPRIDE [Suspect]
     Active Substance: AMISULPRIDE
     Dosage: UNK
  121. AMISULPRIDE [Suspect]
     Active Substance: AMISULPRIDE
     Dosage: UNK
  122. AMISULPRIDE [Suspect]
     Active Substance: AMISULPRIDE
     Dosage: UNK
  123. AMISULPRIDE [Suspect]
     Active Substance: AMISULPRIDE
     Dosage: UNK
     Route: 065
  124. AMISULPRIDE [Suspect]
     Active Substance: AMISULPRIDE
     Dosage: UNK
     Route: 065
  125. AMISULPRIDE [Suspect]
     Active Substance: AMISULPRIDE
     Dosage: UNK
  126. AMISULPRIDE [Suspect]
     Active Substance: AMISULPRIDE
     Dosage: UNK
  127. AMISULPRIDE [Suspect]
     Active Substance: AMISULPRIDE
     Dosage: UNK
     Route: 065
  128. AMISULPRIDE [Suspect]
     Active Substance: AMISULPRIDE
     Dosage: UNK
     Route: 065
  129. OLANZAPINE [Suspect]
     Active Substance: OLANZAPINE
     Indication: Hallucination, auditory
     Dosage: UNK
  130. OLANZAPINE [Suspect]
     Active Substance: OLANZAPINE
     Indication: Schizophrenia
     Dosage: UNK
  131. OLANZAPINE [Suspect]
     Active Substance: OLANZAPINE
     Indication: Schizophrenia
     Dosage: UNK
     Route: 048
  132. OLANZAPINE [Suspect]
     Active Substance: OLANZAPINE
     Indication: Drug ineffective
     Dosage: UNK
     Route: 048
  133. OLANZAPINE [Suspect]
     Active Substance: OLANZAPINE
     Indication: Hallucination, auditory
     Dosage: UNK
  134. OLANZAPINE [Suspect]
     Active Substance: OLANZAPINE
     Dosage: UNK
  135. OLANZAPINE [Suspect]
     Active Substance: OLANZAPINE
     Dosage: UNK
     Route: 048
  136. OLANZAPINE [Suspect]
     Active Substance: OLANZAPINE
     Dosage: UNK
     Route: 048
  137. OLANZAPINE [Suspect]
     Active Substance: OLANZAPINE
     Dosage: DOSAGE FORM: UNKNOWN
     Route: 048
  138. OLANZAPINE [Suspect]
     Active Substance: OLANZAPINE
     Dosage: DOSAGE FORM: UNKNOWN
  139. OLANZAPINE [Suspect]
     Active Substance: OLANZAPINE
     Dosage: DOSAGE FORM: UNKNOWN
  140. OLANZAPINE [Suspect]
     Active Substance: OLANZAPINE
     Dosage: DOSAGE FORM: UNKNOWN
     Route: 048
  141. OLANZAPINE [Suspect]
     Active Substance: OLANZAPINE
     Dosage: UNK
     Route: 048
  142. OLANZAPINE [Suspect]
     Active Substance: OLANZAPINE
     Dosage: UNK
  143. OLANZAPINE [Suspect]
     Active Substance: OLANZAPINE
     Dosage: UNK
  144. OLANZAPINE [Suspect]
     Active Substance: OLANZAPINE
     Dosage: UNK
     Route: 048
  145. OLANZAPINE [Suspect]
     Active Substance: OLANZAPINE
     Dosage: UNK
     Route: 048
  146. OLANZAPINE [Suspect]
     Active Substance: OLANZAPINE
     Dosage: UNK
  147. OLANZAPINE [Suspect]
     Active Substance: OLANZAPINE
     Dosage: UNK
  148. OLANZAPINE [Suspect]
     Active Substance: OLANZAPINE
     Dosage: UNK
     Route: 048
  149. OLANZAPINE [Suspect]
     Active Substance: OLANZAPINE
     Dosage: UNK
     Route: 065
  150. OLANZAPINE [Suspect]
     Active Substance: OLANZAPINE
     Dosage: UNK
     Route: 065
  151. OLANZAPINE [Suspect]
     Active Substance: OLANZAPINE
     Dosage: UNK
  152. OLANZAPINE [Suspect]
     Active Substance: OLANZAPINE
     Dosage: UNK
  153. OLANZAPINE [Suspect]
     Active Substance: OLANZAPINE
     Dosage: UNK
     Route: 065
  154. OLANZAPINE [Suspect]
     Active Substance: OLANZAPINE
     Dosage: UNK
     Route: 065
  155. OLANZAPINE [Suspect]
     Active Substance: OLANZAPINE
     Dosage: UNK
  156. OLANZAPINE [Suspect]
     Active Substance: OLANZAPINE
     Dosage: UNK
  157. OLANZAPINE [Suspect]
     Active Substance: OLANZAPINE
     Dosage: UNK
  158. OLANZAPINE [Suspect]
     Active Substance: OLANZAPINE
     Dosage: UNK
  159. OLANZAPINE [Suspect]
     Active Substance: OLANZAPINE
     Dosage: UNK
     Route: 065
  160. OLANZAPINE [Suspect]
     Active Substance: OLANZAPINE
     Dosage: UNK
     Route: 065
  161. OLANZAPINE [Suspect]
     Active Substance: OLANZAPINE
     Dosage: UNK
     Route: 065
  162. OLANZAPINE [Suspect]
     Active Substance: OLANZAPINE
     Dosage: UNK
  163. OLANZAPINE [Suspect]
     Active Substance: OLANZAPINE
     Dosage: UNK
  164. OLANZAPINE [Suspect]
     Active Substance: OLANZAPINE
     Dosage: UNK
     Route: 065
  165. OLANZAPINE [Suspect]
     Active Substance: OLANZAPINE
     Dosage: UNK
     Route: 065
  166. OLANZAPINE [Suspect]
     Active Substance: OLANZAPINE
     Dosage: UNK
  167. OLANZAPINE [Suspect]
     Active Substance: OLANZAPINE
     Dosage: UNK
  168. OLANZAPINE [Suspect]
     Active Substance: OLANZAPINE
     Dosage: UNK
     Route: 065
  169. OLANZAPINE [Suspect]
     Active Substance: OLANZAPINE
     Dosage: UNK
  170. OLANZAPINE [Suspect]
     Active Substance: OLANZAPINE
     Dosage: UNK
  171. OLANZAPINE [Suspect]
     Active Substance: OLANZAPINE
     Dosage: UNK
     Route: 048
  172. OLANZAPINE [Suspect]
     Active Substance: OLANZAPINE
     Dosage: UNK
     Route: 048
  173. QUETIAPINE [Suspect]
     Active Substance: QUETIAPINE
     Indication: Product used for unknown indication
     Dosage: UNK
     Route: 065
  174. QUETIAPINE [Suspect]
     Active Substance: QUETIAPINE
     Dosage: UNK
  175. QUETIAPINE [Suspect]
     Active Substance: QUETIAPINE
     Dosage: UNK
  176. QUETIAPINE [Suspect]
     Active Substance: QUETIAPINE
     Dosage: UNK
     Route: 065
  177. QUETIAPINE [Suspect]
     Active Substance: QUETIAPINE
     Dosage: UNK, UNK (EVERY)
  178. QUETIAPINE [Suspect]
     Active Substance: QUETIAPINE
     Dosage: UNK, UNK (EVERY)
  179. QUETIAPINE [Suspect]
     Active Substance: QUETIAPINE
     Dosage: UNK, UNK (EVERY)
     Route: 065
  180. QUETIAPINE [Suspect]
     Active Substance: QUETIAPINE
     Dosage: UNK, UNK (EVERY)
     Route: 065
  181. QUETIAPINE [Suspect]
     Active Substance: QUETIAPINE
     Dosage: UNK, UNK (EVERY)
     Route: 048
  182. QUETIAPINE [Suspect]
     Active Substance: QUETIAPINE
     Dosage: UNK, UNK (EVERY)
  183. QUETIAPINE [Suspect]
     Active Substance: QUETIAPINE
     Dosage: UNK, UNK (EVERY)
  184. QUETIAPINE [Suspect]
     Active Substance: QUETIAPINE
     Dosage: UNK, UNK (EVERY)
     Route: 048
  185. QUETIAPINE [Suspect]
     Active Substance: QUETIAPINE
     Dosage: UNK (EVERY)
  186. QUETIAPINE [Suspect]
     Active Substance: QUETIAPINE
     Dosage: UNK (EVERY)
  187. QUETIAPINE [Suspect]
     Active Substance: QUETIAPINE
     Dosage: UNK (EVERY)
     Route: 065
  188. QUETIAPINE [Suspect]
     Active Substance: QUETIAPINE
     Dosage: UNK (EVERY)
     Route: 065
  189. QUETIAPINE [Suspect]
     Active Substance: QUETIAPINE
     Dosage: UNK
  190. QUETIAPINE [Suspect]
     Active Substance: QUETIAPINE
     Dosage: UNK
  191. QUETIAPINE [Suspect]
     Active Substance: QUETIAPINE
     Dosage: UNK
     Route: 065
  192. QUETIAPINE [Suspect]
     Active Substance: QUETIAPINE
     Dosage: UNK
     Route: 065
  193. QUETIAPINE [Suspect]
     Active Substance: QUETIAPINE
     Dosage: UNK
  194. QUETIAPINE [Suspect]
     Active Substance: QUETIAPINE
     Dosage: UNK
     Route: 065
  195. QUETIAPINE [Suspect]
     Active Substance: QUETIAPINE
     Dosage: UNK
  196. QUETIAPINE [Suspect]
     Active Substance: QUETIAPINE
     Dosage: UNK
     Route: 065
  197. RISPERIDONE [Suspect]
     Active Substance: RISPERIDONE
     Indication: Hallucination, auditory
     Dosage: UNK, UNSPECIFIED (START DATE: ??-???-2006)
  198. RISPERIDONE [Suspect]
     Active Substance: RISPERIDONE
     Indication: Schizophrenia
     Dosage: UNK, UNSPECIFIED (START DATE: ??-???-2006)
  199. RISPERIDONE [Suspect]
     Active Substance: RISPERIDONE
     Indication: Hallucination, auditory
     Dosage: UNK, UNSPECIFIED (START DATE: ??-???-2006)
     Route: 065
  200. RISPERIDONE [Suspect]
     Active Substance: RISPERIDONE
     Dosage: UNK, UNSPECIFIED (START DATE: ??-???-2006)
     Route: 065
  201. RISPERIDONE [Suspect]
     Active Substance: RISPERIDONE
     Dosage: UNK
  202. RISPERIDONE [Suspect]
     Active Substance: RISPERIDONE
     Dosage: UNK
  203. RISPERIDONE [Suspect]
     Active Substance: RISPERIDONE
     Dosage: UNK
     Route: 065
  204. RISPERIDONE [Suspect]
     Active Substance: RISPERIDONE
     Dosage: UNK
     Route: 065
  205. RISPERIDONE [Suspect]
     Active Substance: RISPERIDONE
     Dosage: UNK
  206. RISPERIDONE [Suspect]
     Active Substance: RISPERIDONE
     Dosage: UNK
  207. RISPERIDONE [Suspect]
     Active Substance: RISPERIDONE
     Dosage: UNK
     Route: 065
  208. RISPERIDONE [Suspect]
     Active Substance: RISPERIDONE
     Dosage: UNK
     Route: 065
  209. RISPERIDONE [Suspect]
     Active Substance: RISPERIDONE
     Dosage: UNK
  210. RISPERIDONE [Suspect]
     Active Substance: RISPERIDONE
     Dosage: UNK
  211. RISPERIDONE [Suspect]
     Active Substance: RISPERIDONE
     Dosage: UNK
     Route: 065
  212. RISPERIDONE [Suspect]
     Active Substance: RISPERIDONE
     Dosage: UNK
     Route: 065
  213. RISPERIDONE [Suspect]
     Active Substance: RISPERIDONE
     Dosage: UNK
  214. RISPERIDONE [Suspect]
     Active Substance: RISPERIDONE
     Dosage: UNK
     Route: 065
  215. RISPERIDONE [Suspect]
     Active Substance: RISPERIDONE
     Dosage: UNK
  216. RISPERIDONE [Suspect]
     Active Substance: RISPERIDONE
     Dosage: UNK
     Route: 065
  217. ARIPIPRAZOLE [Suspect]
     Active Substance: ARIPIPRAZOLE
     Indication: Hallucination, auditory
     Dosage: UNK
  218. ARIPIPRAZOLE [Suspect]
     Active Substance: ARIPIPRAZOLE
     Dosage: UNK
  219. ARIPIPRAZOLE [Suspect]
     Active Substance: ARIPIPRAZOLE
     Dosage: UNK
     Route: 065
  220. ARIPIPRAZOLE [Suspect]
     Active Substance: ARIPIPRAZOLE
     Dosage: UNK
     Route: 065
  221. ARIPIPRAZOLE [Suspect]
     Active Substance: ARIPIPRAZOLE
     Dosage: UNK (START DATE: ??-???-2019)
  222. ARIPIPRAZOLE [Suspect]
     Active Substance: ARIPIPRAZOLE
     Dosage: UNK (START DATE: ??-???-2019)
  223. ARIPIPRAZOLE [Suspect]
     Active Substance: ARIPIPRAZOLE
     Dosage: UNK (START DATE: ??-???-2019)
     Route: 065
  224. ARIPIPRAZOLE [Suspect]
     Active Substance: ARIPIPRAZOLE
     Dosage: UNK (START DATE: ??-???-2019)
     Route: 065
  225. ARIPIPRAZOLE [Suspect]
     Active Substance: ARIPIPRAZOLE
     Dosage: UNK (UNK, (EVERY)), INITIATED-2019
  226. ARIPIPRAZOLE [Suspect]
     Active Substance: ARIPIPRAZOLE
     Dosage: UNK (UNK, (EVERY)), INITIATED-2019
  227. ARIPIPRAZOLE [Suspect]
     Active Substance: ARIPIPRAZOLE
     Dosage: UNK (UNK, (EVERY)), INITIATED-2019
     Route: 065
  228. ARIPIPRAZOLE [Suspect]
     Active Substance: ARIPIPRAZOLE
     Dosage: UNK (UNK, (EVERY)), INITIATED-2019
     Route: 065
  229. ARIPIPRAZOLE [Suspect]
     Active Substance: ARIPIPRAZOLE
     Dosage: UNK
  230. ARIPIPRAZOLE [Suspect]
     Active Substance: ARIPIPRAZOLE
     Dosage: UNK
  231. ARIPIPRAZOLE [Suspect]
     Active Substance: ARIPIPRAZOLE
     Dosage: UNK
     Route: 065
  232. ARIPIPRAZOLE [Suspect]
     Active Substance: ARIPIPRAZOLE
     Dosage: UNK
     Route: 065
  233. ARIPIPRAZOLE [Suspect]
     Active Substance: ARIPIPRAZOLE
     Dosage: UNK
  234. ARIPIPRAZOLE [Suspect]
     Active Substance: ARIPIPRAZOLE
     Dosage: UNK
     Route: 065
  235. ARIPIPRAZOLE [Suspect]
     Active Substance: ARIPIPRAZOLE
     Dosage: UNK
  236. ARIPIPRAZOLE [Suspect]
     Active Substance: ARIPIPRAZOLE
     Dosage: UNK
     Route: 065
  237. ARIPIPRAZOLE [Suspect]
     Active Substance: ARIPIPRAZOLE
     Indication: Hallucination, auditory
     Dosage: UNK (START DATE: ??-???-2019)
     Route: 065
  238. ARIPIPRAZOLE [Suspect]
     Active Substance: ARIPIPRAZOLE
     Dosage: UNK (START DATE: ??-???-2019)
  239. ARIPIPRAZOLE [Suspect]
     Active Substance: ARIPIPRAZOLE
     Dosage: UNK (START DATE: ??-???-2019)
  240. ARIPIPRAZOLE [Suspect]
     Active Substance: ARIPIPRAZOLE
     Dosage: UNK (START DATE: ??-???-2019)
     Route: 065
  241. ARIPIPRAZOLE [Suspect]
     Active Substance: ARIPIPRAZOLE
     Dosage: UNK (UNK, (EVERY))
  242. ARIPIPRAZOLE [Suspect]
     Active Substance: ARIPIPRAZOLE
     Dosage: UNK (UNK, (EVERY))
  243. ARIPIPRAZOLE [Suspect]
     Active Substance: ARIPIPRAZOLE
     Dosage: UNK (UNK, (EVERY))
     Route: 065
  244. ARIPIPRAZOLE [Suspect]
     Active Substance: ARIPIPRAZOLE
     Dosage: UNK (UNK, (EVERY))
     Route: 065
  245. ARIPIPRAZOLE [Suspect]
     Active Substance: ARIPIPRAZOLE
     Dosage: UNK
     Route: 065
  246. ARIPIPRAZOLE [Suspect]
     Active Substance: ARIPIPRAZOLE
     Dosage: UNK
  247. ARIPIPRAZOLE [Suspect]
     Active Substance: ARIPIPRAZOLE
     Dosage: UNK
  248. ARIPIPRAZOLE [Suspect]
     Active Substance: ARIPIPRAZOLE
     Dosage: UNK
     Route: 065
  249. ARIPIPRAZOLE [Suspect]
     Active Substance: ARIPIPRAZOLE
     Dosage: UNK (START DATE: ??-???-2019)
     Route: 065
  250. ARIPIPRAZOLE [Suspect]
     Active Substance: ARIPIPRAZOLE
     Dosage: UNK (START DATE: ??-???-2019)
  251. ARIPIPRAZOLE [Suspect]
     Active Substance: ARIPIPRAZOLE
     Dosage: UNK (START DATE: ??-???-2019)
  252. ARIPIPRAZOLE [Suspect]
     Active Substance: ARIPIPRAZOLE
     Dosage: UNK (START DATE: ??-???-2019)
     Route: 065
  253. ARIPIPRAZOLE [Suspect]
     Active Substance: ARIPIPRAZOLE
     Dosage: UNK (EVERY)
     Route: 065
  254. ARIPIPRAZOLE [Suspect]
     Active Substance: ARIPIPRAZOLE
     Dosage: UNK (EVERY)
  255. ARIPIPRAZOLE [Suspect]
     Active Substance: ARIPIPRAZOLE
     Dosage: UNK (EVERY)
  256. ARIPIPRAZOLE [Suspect]
     Active Substance: ARIPIPRAZOLE
     Dosage: UNK (EVERY)
     Route: 065
  257. ARIPIPRAZOLE [Suspect]
     Active Substance: ARIPIPRAZOLE
     Dosage: UNK
     Route: 065
  258. ARIPIPRAZOLE [Suspect]
     Active Substance: ARIPIPRAZOLE
     Dosage: UNK
     Route: 065
  259. ARIPIPRAZOLE [Suspect]
     Active Substance: ARIPIPRAZOLE
     Dosage: UNK
  260. ARIPIPRAZOLE [Suspect]
     Active Substance: ARIPIPRAZOLE
     Dosage: UNK
  261. ZUCLOPENTHIXOL HYDROCHLORIDE [Suspect]
     Active Substance: ZUCLOPENTHIXOL HYDROCHLORIDE
     Indication: Hallucination, auditory
     Dosage: UNK (START DATE: ??-???-2006)
     Dates: end: 20171205
  262. ZUCLOPENTHIXOL HYDROCHLORIDE [Suspect]
     Active Substance: ZUCLOPENTHIXOL HYDROCHLORIDE
     Indication: Schizophrenia
     Dosage: UNK (START DATE: ??-???-2006)
     Route: 065
     Dates: end: 20171205
  263. ZUCLOPENTHIXOL HYDROCHLORIDE [Suspect]
     Active Substance: ZUCLOPENTHIXOL HYDROCHLORIDE
     Indication: Hallucination, auditory
     Dosage: UNK (START DATE: ??-???-2006)
     Route: 065
     Dates: end: 20171205
  264. ZUCLOPENTHIXOL HYDROCHLORIDE [Suspect]
     Active Substance: ZUCLOPENTHIXOL HYDROCHLORIDE
     Indication: Hallucination, auditory
     Dosage: UNK (START DATE: ??-???-2006)
     Dates: end: 20171205
  265. ZUCLOPENTHIXOL HYDROCHLORIDE [Suspect]
     Active Substance: ZUCLOPENTHIXOL HYDROCHLORIDE
     Indication: Drug ineffective
     Dosage: UNK
     Route: 065
  266. ZUCLOPENTHIXOL HYDROCHLORIDE [Suspect]
     Active Substance: ZUCLOPENTHIXOL HYDROCHLORIDE
     Dosage: UNK
     Route: 065
  267. ZUCLOPENTHIXOL HYDROCHLORIDE [Suspect]
     Active Substance: ZUCLOPENTHIXOL HYDROCHLORIDE
     Dosage: UNK
  268. ZUCLOPENTHIXOL HYDROCHLORIDE [Suspect]
     Active Substance: ZUCLOPENTHIXOL HYDROCHLORIDE
     Dosage: UNK
  269. ZUCLOPENTHIXOL HYDROCHLORIDE [Suspect]
     Active Substance: ZUCLOPENTHIXOL HYDROCHLORIDE
     Dosage: UNK
  270. ZUCLOPENTHIXOL HYDROCHLORIDE [Suspect]
     Active Substance: ZUCLOPENTHIXOL HYDROCHLORIDE
     Dosage: UNK
     Route: 065
  271. ZUCLOPENTHIXOL HYDROCHLORIDE [Suspect]
     Active Substance: ZUCLOPENTHIXOL HYDROCHLORIDE
     Dosage: UNK
  272. ZUCLOPENTHIXOL HYDROCHLORIDE [Suspect]
     Active Substance: ZUCLOPENTHIXOL HYDROCHLORIDE
     Dosage: UNK
     Route: 065
  273. RISPERDAL [Suspect]
     Active Substance: RISPERIDONE
     Indication: Schizophrenia
     Dosage: UNK
  274. RISPERDAL [Suspect]
     Active Substance: RISPERIDONE
     Indication: Hallucination, auditory
     Dosage: UNK
     Route: 065
  275. RISPERDAL [Suspect]
     Active Substance: RISPERIDONE
     Indication: Hallucination, auditory
     Dosage: UNK
  276. RISPERDAL [Suspect]
     Active Substance: RISPERIDONE
     Indication: Drug ineffective
     Dosage: UNK
     Route: 065
  277. RISPERDAL [Suspect]
     Active Substance: RISPERIDONE
     Dosage: UNK
     Route: 065
  278. RISPERDAL [Suspect]
     Active Substance: RISPERIDONE
     Dosage: UNK
     Route: 065
  279. RISPERDAL [Suspect]
     Active Substance: RISPERIDONE
     Dosage: UNK
  280. RISPERDAL [Suspect]
     Active Substance: RISPERIDONE
     Dosage: UNK
  281. RISPERDAL [Suspect]
     Active Substance: RISPERIDONE
     Dosage: UNK
  282. RISPERDAL [Suspect]
     Active Substance: RISPERIDONE
     Dosage: UNK
  283. RISPERDAL [Suspect]
     Active Substance: RISPERIDONE
     Dosage: UNK
     Route: 065
  284. RISPERDAL [Suspect]
     Active Substance: RISPERIDONE
     Dosage: UNK
     Route: 065
  285. RISPERDAL [Suspect]
     Active Substance: RISPERIDONE
     Dosage: UNK , (EVERY)
  286. RISPERDAL [Suspect]
     Active Substance: RISPERIDONE
     Dosage: UNK , (EVERY)
     Route: 065
  287. RISPERDAL [Suspect]
     Active Substance: RISPERIDONE
     Dosage: UNK , (EVERY)
     Route: 065
  288. RISPERDAL [Suspect]
     Active Substance: RISPERIDONE
     Dosage: UNK , (EVERY)
  289. RISPERDAL [Suspect]
     Active Substance: RISPERIDONE
     Dosage: UNK (EVERY)
     Route: 065
  290. RISPERDAL [Suspect]
     Active Substance: RISPERIDONE
     Dosage: UNK (EVERY)
     Route: 065
  291. RISPERDAL [Suspect]
     Active Substance: RISPERIDONE
     Dosage: UNK (EVERY)
  292. RISPERDAL [Suspect]
     Active Substance: RISPERIDONE
     Dosage: UNK (EVERY)
  293. RISPERDAL [Suspect]
     Active Substance: RISPERIDONE
     Dosage: UNK
     Route: 065
  294. RISPERDAL [Suspect]
     Active Substance: RISPERIDONE
     Dosage: UNK
  295. RISPERDAL [Suspect]
     Active Substance: RISPERIDONE
     Dosage: UNK
  296. RISPERDAL [Suspect]
     Active Substance: RISPERIDONE
     Dosage: UNK
     Route: 065
  297. RISPERDAL [Suspect]
     Active Substance: RISPERIDONE
     Dosage: UNK
     Route: 065
  298. RISPERDAL [Suspect]
     Active Substance: RISPERIDONE
     Dosage: UNK
  299. RISPERDAL [Suspect]
     Active Substance: RISPERIDONE
     Dosage: UNK
  300. RISPERDAL [Suspect]
     Active Substance: RISPERIDONE
     Dosage: UNK
     Route: 065
  301. RISPERDAL [Suspect]
     Active Substance: RISPERIDONE
     Dosage: UNK (UNK, (EVERY)), START DATE: ??-???-2006
  302. RISPERDAL [Suspect]
     Active Substance: RISPERIDONE
     Dosage: UNK (UNK, (EVERY)), START DATE: ??-???-2006
  303. RISPERDAL [Suspect]
     Active Substance: RISPERIDONE
     Dosage: UNK (UNK, (EVERY)), START DATE: ??-???-2006
     Route: 065
  304. RISPERDAL [Suspect]
     Active Substance: RISPERIDONE
     Dosage: UNK (UNK, (EVERY)), START DATE: ??-???-2006
     Route: 065
  305. HALDOL [Suspect]
     Active Substance: HALOPERIDOL
     Indication: Hallucination, auditory
     Dosage: UNK (START DATE: ??-???-2006)
  306. HALDOL [Suspect]
     Active Substance: HALOPERIDOL
     Indication: Schizophrenia
     Dosage: UNK (START DATE: ??-???-2006)
  307. HALDOL [Suspect]
     Active Substance: HALOPERIDOL
     Indication: Product used for unknown indication
     Dosage: UNK (START DATE: ??-???-2006)
     Route: 065
  308. HALDOL [Suspect]
     Active Substance: HALOPERIDOL
     Indication: Drug ineffective
     Dosage: UNK (START DATE: ??-???-2006)
     Route: 065
  309. HALDOL [Suspect]
     Active Substance: HALOPERIDOL
     Indication: Hallucination, auditory
     Dosage: UNK, (2019)
  310. HALDOL [Suspect]
     Active Substance: HALOPERIDOL
     Dosage: UNK, (2019)
     Route: 065
  311. HALDOL [Suspect]
     Active Substance: HALOPERIDOL
     Dosage: UNK, (2019)
     Route: 065
  312. HALDOL [Suspect]
     Active Substance: HALOPERIDOL
     Dosage: UNK, (2019)
  313. HALDOL [Suspect]
     Active Substance: HALOPERIDOL
     Dosage: UNK, UNSPECIFIED (START DATE: ??-???-2019)
  314. HALDOL [Suspect]
     Active Substance: HALOPERIDOL
     Dosage: UNK, UNSPECIFIED (START DATE: ??-???-2019)
     Route: 065
  315. HALDOL [Suspect]
     Active Substance: HALOPERIDOL
     Dosage: UNK, UNSPECIFIED (START DATE: ??-???-2019)
     Route: 065
  316. HALDOL [Suspect]
     Active Substance: HALOPERIDOL
     Dosage: UNK, UNSPECIFIED (START DATE: ??-???-2019)
  317. HALDOL [Suspect]
     Active Substance: HALOPERIDOL
     Dosage: UNK, DOSAGE FORM: UNSPECIFIED (2019)
     Route: 065
  318. HALDOL [Suspect]
     Active Substance: HALOPERIDOL
     Dosage: UNK, DOSAGE FORM: UNSPECIFIED (2019)
  319. HALDOL [Suspect]
     Active Substance: HALOPERIDOL
     Dosage: UNK, DOSAGE FORM: UNSPECIFIED (2019)
     Route: 065
  320. HALDOL [Suspect]
     Active Substance: HALOPERIDOL
     Dosage: UNK, DOSAGE FORM: UNSPECIFIED (2019)
  321. HALDOL [Suspect]
     Active Substance: HALOPERIDOL
     Dosage: UNK (START DATE: ??-???-2019)
     Route: 065
  322. HALDOL [Suspect]
     Active Substance: HALOPERIDOL
     Dosage: UNK (START DATE: ??-???-2019)
  323. HALDOL [Suspect]
     Active Substance: HALOPERIDOL
     Dosage: UNK (START DATE: ??-???-2019)
     Route: 065
  324. HALDOL [Suspect]
     Active Substance: HALOPERIDOL
     Dosage: UNK (START DATE: ??-???-2019)
  325. AMISULPRIDE [Suspect]
     Active Substance: AMISULPRIDE
     Indication: Hallucination, auditory
     Dosage: UNK
     Route: 065
  326. AMISULPRIDE [Suspect]
     Active Substance: AMISULPRIDE
     Dosage: UNK
  327. AMISULPRIDE [Suspect]
     Active Substance: AMISULPRIDE
     Dosage: UNK
  328. AMISULPRIDE [Suspect]
     Active Substance: AMISULPRIDE
     Dosage: UNK
     Route: 065
  329. AMISULPRIDE [Suspect]
     Active Substance: AMISULPRIDE
     Dosage: UNK
  330. AMISULPRIDE [Suspect]
     Active Substance: AMISULPRIDE
     Dosage: UNK
  331. AMISULPRIDE [Suspect]
     Active Substance: AMISULPRIDE
     Dosage: UNK
     Route: 065
  332. AMISULPRIDE [Suspect]
     Active Substance: AMISULPRIDE
     Dosage: UNK
     Route: 065
  333. AMISULPRIDE [Suspect]
     Active Substance: AMISULPRIDE
     Dosage: UNK
     Route: 065
  334. AMISULPRIDE [Suspect]
     Active Substance: AMISULPRIDE
     Dosage: UNK
  335. AMISULPRIDE [Suspect]
     Active Substance: AMISULPRIDE
     Dosage: UNK
  336. AMISULPRIDE [Suspect]
     Active Substance: AMISULPRIDE
     Dosage: UNK
     Route: 065
  337. AMISULPRIDE [Suspect]
     Active Substance: AMISULPRIDE
     Dosage: UNK
  338. AMISULPRIDE [Suspect]
     Active Substance: AMISULPRIDE
     Dosage: UNK
  339. AMISULPRIDE [Suspect]
     Active Substance: AMISULPRIDE
     Dosage: UNK
     Route: 065
  340. AMISULPRIDE [Suspect]
     Active Substance: AMISULPRIDE
     Dosage: UNK
     Route: 065
  341. AMISULPRIDE [Suspect]
     Active Substance: AMISULPRIDE
     Dosage: UNK
  342. AMISULPRIDE [Suspect]
     Active Substance: AMISULPRIDE
     Dosage: UNK
  343. AMISULPRIDE [Suspect]
     Active Substance: AMISULPRIDE
     Dosage: UNK
     Route: 065
  344. AMISULPRIDE [Suspect]
     Active Substance: AMISULPRIDE
     Dosage: UNK
     Route: 065
  345. AMISULPRIDE [Suspect]
     Active Substance: AMISULPRIDE
     Dosage: UNK
  346. AMISULPRIDE [Suspect]
     Active Substance: AMISULPRIDE
     Dosage: UNK
     Route: 065
  347. AMISULPRIDE [Suspect]
     Active Substance: AMISULPRIDE
     Dosage: UNK
  348. AMISULPRIDE [Suspect]
     Active Substance: AMISULPRIDE
     Dosage: UNK
     Route: 065
  349. ZUCLOPENTHIXOL [Suspect]
     Active Substance: ZUCLOPENTHIXOL
     Indication: Schizophrenia
     Dosage: UNK (START DATE: ??-???-2006)
     Dates: end: 20171205
  350. ZUCLOPENTHIXOL [Suspect]
     Active Substance: ZUCLOPENTHIXOL
     Indication: Hallucination, auditory
     Dosage: UNK (START DATE: ??-???-2006)
     Route: 065
     Dates: end: 20171205
  351. ZUCLOPENTHIXOL [Suspect]
     Active Substance: ZUCLOPENTHIXOL
     Indication: Hallucination, auditory
     Dosage: UNK (START DATE: ??-???-2006)
     Route: 065
     Dates: end: 20171205
  352. ZUCLOPENTHIXOL [Suspect]
     Active Substance: ZUCLOPENTHIXOL
     Indication: Drug ineffective
     Dosage: UNK (START DATE: ??-???-2006)
     Dates: end: 20171205
  353. ABILIFY [Suspect]
     Active Substance: ARIPIPRAZOLE
     Indication: Hallucination, auditory
     Dosage: UNK
  354. ABILIFY [Suspect]
     Active Substance: ARIPIPRAZOLE
     Dosage: UNK
     Route: 065
  355. ABILIFY [Suspect]
     Active Substance: ARIPIPRAZOLE
     Dosage: UNK
     Route: 065
  356. ABILIFY [Suspect]
     Active Substance: ARIPIPRAZOLE
     Dosage: UNK

REACTIONS (15)
  - Suicidal ideation [Unknown]
  - Eating disorder [Unknown]
  - Schizophrenia [Not Recovered/Not Resolved]
  - Mental impairment [Not Recovered/Not Resolved]
  - Malaise [Not Recovered/Not Resolved]
  - Eosinophil count decreased [Recovered/Resolved]
  - Neutropenia [Recovered/Resolved]
  - Leukopenia [Recovered/Resolved]
  - Drug ineffective [Unknown]
  - Drug abuse [Unknown]
  - Intentional product misuse [Unknown]
  - Medication error [Unknown]
  - Product use in unapproved indication [Unknown]
  - Gastroenteritis [Unknown]
  - Food poisoning [Unknown]

NARRATIVE: CASE EVENT DATE: 20170901
